FAERS Safety Report 25049211 (Version 1)
Quarter: 2025Q1

REPORT INFORMATION
  Report Type: Spontaneous
  Country: US (occurrence: US)
  Receive Date: 20250307
  Receipt Date: 20250307
  Transmission Date: 20250409
  Serious: No
  Sender: ALEXION PHARMACEUTICALS
  Company Number: US-AstraZeneca-CH-00820968AP

PATIENT

DRUGS (1)
  1. SYMBICORT [Suspect]
     Active Substance: BUDESONIDE\FORMOTEROL FUMARATE DIHYDRATE
     Dosage: 160 MICROGRAM, BID
     Route: 065

REACTIONS (9)
  - Incorrect dose administered [Unknown]
  - Product dose omission issue [Unknown]
  - Overdose [Unknown]
  - Seasonal allergy [Unknown]
  - Device malfunction [Unknown]
  - Device delivery system issue [Unknown]
  - Allergy to animal [Unknown]
  - Drug delivery system malfunction [Unknown]
  - Wheezing [Unknown]
